FAERS Safety Report 20601281 (Version 1)
Quarter: 2022Q1

REPORT INFORMATION
  Report Type: Spontaneous
  Country: IT (occurrence: IT)
  Receive Date: 20220316
  Receipt Date: 20220316
  Transmission Date: 20220424
  Serious: Yes (Death, Other)
  Sender: FDA-Public Use
  Company Number: IT-GILEAD-2022-0573160

PATIENT
  Age: 68 Year
  Sex: Male

DRUGS (3)
  1. AMPHOTERICIN B [Suspect]
     Active Substance: AMPHOTERICIN B
     Indication: Cerebral fungal infection
     Dosage: UNK UNK, UNKNOWN FREQ.
     Route: 065
  2. ITRACONAZOLE [Concomitant]
     Active Substance: ITRACONAZOLE
     Indication: Product used for unknown indication
     Dosage: UNK UNK, UNKNOWN FREQ.
     Route: 065
  3. VORICONAZOLE [Concomitant]
     Active Substance: VORICONAZOLE
     Indication: Product used for unknown indication
     Dosage: UNK UNK, UNKNOWN FREQ.
     Route: 065

REACTIONS (1)
  - Drug ineffective [Fatal]
